FAERS Safety Report 6773900-5 (Version None)
Quarter: 2010Q2

REPORT INFORMATION
  Report Type: 
  Country: None (occurrence: None)
  Receive Date: 20100617
  Receipt Date: 20100608
  Transmission Date: 20101027
  Serious: No
  Sender: FDA-Public Use
  Company Number: 2009BI026157

PATIENT
  Age: 59 Year
  Sex: Male

DRUGS (4)
  1. TYSABRI [Suspect]
     Indication: MULTIPLE SCLEROSIS
     Route: 042
     Dates: start: 20080822
  2. DETROL [Concomitant]
     Route: 048
  3. NEURONTIN [Concomitant]
     Route: 048
  4. VITAMIN C [Concomitant]
     Route: 048

REACTIONS (4)
  - APHASIA [None]
  - MUSCLE SPASTICITY [None]
  - MUSCULAR WEAKNESS [None]
  - POLLAKIURIA [None]
